FAERS Safety Report 14211161 (Version 1)
Quarter: 2017Q4

REPORT INFORMATION
  Report Type: Spontaneous
  Country: AZ (occurrence: AZ)
  Receive Date: 20171121
  Receipt Date: 20171121
  Transmission Date: 20180321
  Serious: Yes (Other)
  Sender: FDA-Public Use
  Company Number: AZ-009507513-1711AZE006768

PATIENT
  Age: 36 Year

DRUGS (1)
  1. ELOCOM [Suspect]
     Active Substance: MOMETASONE FUROATE
     Indication: HYPERSENSITIVITY
     Dosage: UNK

REACTIONS (4)
  - Neurosis [Unknown]
  - Swelling [Unknown]
  - Rash [Unknown]
  - Meniere^s disease [Unknown]
